FAERS Safety Report 8862837 (Version 1)
Quarter: 2012Q4

REPORT INFORMATION
  Report Type: 
  Country: US (occurrence: US)
  Receive Date: 20121026
  Receipt Date: 20121026
  Transmission Date: 20130627
  Serious: Yes (Death, Life-Threatening, Hospitalization, Disabling)
  Sender: FDA-Public Use
  Company Number: US-GLAXOSMITHKLINE-A0998193A

PATIENT
  Age: 40 Year
  Sex: Female

DRUGS (4)
  1. LAMICTAL [Suspect]
     Indication: BIPOLAR DISORDER
     Dosage: 25MG Per day
     Route: 048
     Dates: start: 2010, end: 2010
  2. WELLBUTRIN [Concomitant]
  3. KLONOPIN [Concomitant]
  4. GEODON [Concomitant]

REACTIONS (1)
  - Rash [Fatal]
